FAERS Safety Report 24791719 (Version 1)
Quarter: 2024Q4

REPORT INFORMATION
  Report Type: Report from Study
  Country: JP (occurrence: JP)
  Receive Date: 20241231
  Receipt Date: 20241231
  Transmission Date: 20250115
  Serious: Yes (Death)
  Sender: ROCHE
  Company Number: JP-ROCHE-10000165910

PATIENT

DRUGS (2)
  1. ATEZOLIZUMAB [Suspect]
     Active Substance: ATEZOLIZUMAB
     Indication: Hepatocellular carcinoma
     Route: 065
  2. BEVACIZUMAB [Suspect]
     Active Substance: BEVACIZUMAB
     Indication: Hepatocellular carcinoma
     Route: 042

REACTIONS (7)
  - Interstitial lung disease [Fatal]
  - Hepatic failure [Fatal]
  - Gastrointestinal haemorrhage [Fatal]
  - Infection [Fatal]
  - Spontaneous bacterial peritonitis [Fatal]
  - Renal failure [Fatal]
  - Cardiac failure congestive [Fatal]
